FAERS Safety Report 7679070-3 (Version None)
Quarter: 2011Q3

REPORT INFORMATION
  Report Type: 
  Country: None (occurrence: None)
  Receive Date: 20110812
  Receipt Date: 20110803
  Transmission Date: 20111222
  Serious: Yes (Hospitalization)
  Sender: FDA-Public Use
  Company Number: US-AMGEN-USASP2011039540

PATIENT
  Age: 49 Year
  Sex: Female

DRUGS (1)
  1. ENBREL [Suspect]
     Indication: PSORIASIS
     Dosage: UNK
     Dates: start: 20051209, end: 20060101

REACTIONS (5)
  - RENAL DISORDER [None]
  - LIVER DISORDER [None]
  - PSORIASIS [None]
  - HYPERAMMONAEMIC ENCEPHALOPATHY [None]
  - ASCITES [None]
